FAERS Safety Report 11644245 (Version 1)
Quarter: 2015Q4

REPORT INFORMATION
  Report Type: Spontaneous
  Country: US (occurrence: None)
  Receive Date: 20151019
  Receipt Date: 20151019
  Transmission Date: 20160304
  Serious: No
  Sender: FDA-Public Use
  Company Number: None

PATIENT
  Age: 53 Year
  Sex: Female

DRUGS (12)
  1. BUMES [Concomitant]
  2. TECFIDERA [Suspect]
     Active Substance: DIMETHYL FUMARATE
     Indication: MULTIPLE SCLEROSIS
     Dates: start: 20151006, end: 20151016
  3. BYSTOLIC [Concomitant]
     Active Substance: NEBIVOLOL HYDROCHLORIDE
  4. PRILOSEC [Concomitant]
     Active Substance: OMEPRAZOLE MAGNESIUM
  5. HYDREA [Concomitant]
     Active Substance: HYDROXYUREA
  6. IMURAN [Concomitant]
     Active Substance: AZATHIOPRINE
  7. MAGNESIUM [Concomitant]
     Active Substance: MAGNESIUM
  8. ANAGRELIDE [Concomitant]
     Active Substance: ANAGRELIDE
  9. ASACOL [Concomitant]
     Active Substance: MESALAMINE
  10. DILTIAZEM [Concomitant]
     Active Substance: DILTIAZEM
  11. PREDNISONE. [Concomitant]
     Active Substance: PREDNISONE
  12. ZOLOFT [Concomitant]
     Active Substance: SERTRALINE HYDROCHLORIDE

REACTIONS (1)
  - Musculoskeletal disorder [None]

NARRATIVE: CASE EVENT DATE: 20151014
